FAERS Safety Report 8196652-3 (Version None)
Quarter: 2012Q1

REPORT INFORMATION
  Report Type: 
  Country: None (occurrence: None)
  Receive Date: 20120309
  Receipt Date: 20120305
  Transmission Date: 20120608
  Serious: No
  Sender: FDA-Public Use
  Company Number: US-TEVA-326458USA

PATIENT
  Sex: Male
  Weight: 95.34 kg

DRUGS (5)
  1. ROSUVASTATIN [Concomitant]
  2. CLOPIDOGREL [Concomitant]
  3. LAMOTRIGINE [Concomitant]
  4. AZILECT [Suspect]
     Dosage: .5 MILLIGRAM;
     Route: 048
     Dates: start: 20120201, end: 20120302
  5. ACETYLSALICYLIC ACID SRT [Concomitant]

REACTIONS (1)
  - BLOOD PRESSURE INCREASED [None]
